FAERS Safety Report 12489056 (Version 1)
Quarter: 2016Q2

REPORT INFORMATION
  Report Type: Spontaneous
  Country: GB (occurrence: GB)
  Receive Date: 20160622
  Receipt Date: 20160622
  Transmission Date: 20160815
  Serious: Yes (Other)
  Sender: FDA-Public Use
  Company Number: GB-TEVA-668559ACC

PATIENT
  Sex: Male

DRUGS (8)
  1. CETUXIMAB [Suspect]
     Active Substance: CETUXIMAB
     Indication: ANAL CANCER METASTATIC
  2. AVASTIN [Suspect]
     Active Substance: BEVACIZUMAB
     Indication: RECTAL CANCER METASTATIC
  3. CAPECITABINE. [Suspect]
     Active Substance: CAPECITABINE
     Indication: ANAL CANCER METASTATIC
     Route: 065
     Dates: start: 20160315
  4. OXALIPLATIN. [Suspect]
     Active Substance: OXALIPLATIN
     Indication: RECTAL CANCER METASTATIC
  5. OXALIPLATIN. [Suspect]
     Active Substance: OXALIPLATIN
     Indication: ANAL CANCER METASTATIC
     Route: 065
     Dates: start: 20160315
  6. AVASTIN [Suspect]
     Active Substance: BEVACIZUMAB
     Indication: ANAL CANCER METASTATIC
     Route: 065
     Dates: start: 20160315
  7. CETUXIMAB [Suspect]
     Active Substance: CETUXIMAB
     Indication: RECTAL CANCER METASTATIC
     Route: 065
  8. CAPECITABINE. [Suspect]
     Active Substance: CAPECITABINE
     Indication: RECTAL CANCER METASTATIC

REACTIONS (16)
  - Pyrexia [Unknown]
  - Urine abnormality [Unknown]
  - Fatigue [Unknown]
  - Palmar-plantar erythrodysaesthesia syndrome [Unknown]
  - Pollakiuria [Not Recovered/Not Resolved]
  - Headache [Unknown]
  - Mucous stools [Unknown]
  - Chest pain [Unknown]
  - Frequent bowel movements [Unknown]
  - Neuropathy peripheral [Unknown]
  - Musculoskeletal chest pain [Unknown]
  - Dyspnoea exertional [Unknown]
  - Blood urine present [Unknown]
  - Intestinal haemorrhage [Unknown]
  - Malaise [Unknown]
  - Sleep disorder [Unknown]
